FAERS Safety Report 25081396 (Version 1)
Quarter: 2025Q1

REPORT INFORMATION
  Report Type: Spontaneous
  Country: FR (occurrence: FR)
  Receive Date: 20250316
  Receipt Date: 20250316
  Transmission Date: 20250409
  Serious: Yes (Death, Other)
  Sender: AUROBINDO
  Company Number: FR-AFSSAPS-AVBX2025000161

PATIENT
  Age: 41 Year
  Sex: Male

DRUGS (4)
  1. CITALOPRAM [Suspect]
     Active Substance: CITALOPRAM
     Indication: Product used for unknown indication
     Route: 065
     Dates: start: 2024
  2. CYAMEMAZINE [Suspect]
     Active Substance: CYAMEMAZINE
     Indication: Product used for unknown indication
     Route: 065
     Dates: start: 2024
  3. COCAINE [Suspect]
     Active Substance: COCAINE
     Indication: Product used for unknown indication
     Route: 065
     Dates: start: 2024
  4. METHADONE HYDROCHLORIDE [Suspect]
     Active Substance: METHADONE HYDROCHLORIDE
     Indication: Drug withdrawal maintenance therapy
     Route: 065
     Dates: start: 2024

REACTIONS (1)
  - Death [Fatal]

NARRATIVE: CASE EVENT DATE: 20241101
